FAERS Safety Report 8000506-2 (Version None)
Quarter: 2011Q4

REPORT INFORMATION
  Report Type: 
  Country: None (occurrence: None)
  Receive Date: 20111216
  Receipt Date: 20111201
  Transmission Date: 20120403
  Serious: Yes (Hospitalization)
  Sender: FDA-Public Use
  Company Number: 2011P1013646

PATIENT
  Age: 67 Year
  Sex: Male

DRUGS (3)
  1. LAMOTRIGINE [Suspect]
     Indication: EPILEPSY
     Dosage: 100 MG;QD;PO, 200 MG;QD;PO, 300 MG;QD;PO
     Route: 048
     Dates: start: 20081201
  2. LAMOTRIGINE [Suspect]
     Indication: EPILEPSY
     Dosage: 100 MG;QD;PO, 200 MG;QD;PO, 300 MG;QD;PO
     Route: 048
     Dates: start: 20081201, end: 20081201
  3. LAMOTRIGINE [Suspect]
     Indication: EPILEPSY
     Dosage: 100 MG;QD;PO, 200 MG;QD;PO, 300 MG;QD;PO
     Route: 048
     Dates: start: 20050101, end: 20081201

REACTIONS (11)
  - VENTRICULAR EXTRASYSTOLES [None]
  - HYPERTHERMIA MALIGNANT [None]
  - ASTHENIA [None]
  - DYSPNOEA [None]
  - METABOLIC MYOPATHY [None]
  - SYNCOPE [None]
  - TREMOR [None]
  - DIZZINESS [None]
  - CHEST PAIN [None]
  - COMPLEX PARTIAL SEIZURES [None]
  - LEFT VENTRICLE OUTFLOW TRACT OBSTRUCTION [None]
